FAERS Safety Report 20254388 (Version 1)
Quarter: 2021Q4

REPORT INFORMATION
  Report Type: Other
  Country: US (occurrence: None)
  Receive Date: 20211230
  Receipt Date: 20211230
  Transmission Date: 20220303
  Serious: No
  Sender: FDA-Public Use
  Company Number: US-ROCHE-2986764

PATIENT
  Age: 52 Year
  Sex: Female

DRUGS (2)
  1. OCREVUS [Suspect]
     Active Substance: OCRELIZUMAB
     Indication: Multiple sclerosis
     Dosage: PREVIOUS DATE OF TREATMENT: 28/OCT/2019, 14/MAY/2020, 03/NOV/2020, 04/JUN/2021
     Route: 065
     Dates: start: 20191011
  2. XANAX [Concomitant]
     Active Substance: ALPRAZOLAM

REACTIONS (1)
  - COVID-19 [Recovering/Resolving]

NARRATIVE: CASE EVENT DATE: 20211201
